FAERS Safety Report 9821113 (Version 1)
Quarter: 2014Q1

REPORT INFORMATION
  Report Type: Spontaneous
  Country: US (occurrence: US)
  Receive Date: 20140116
  Receipt Date: 20140116
  Transmission Date: 20141002
  Serious: Yes (Hospitalization, Other)
  Sender: FDA-Public Use
  Company Number: US-BAYER-2014-006909

PATIENT
  Age: 24 Year
  Sex: Female

DRUGS (4)
  1. YASMIN [Suspect]
  2. CELEXA [Concomitant]
  3. SEROQUEL [Concomitant]
     Dosage: 100 MG, UNK
  4. NAPROSYN [Concomitant]
     Dosage: 500 MG, BID

REACTIONS (3)
  - Cardiac ventricular thrombosis [None]
  - Cardiac ventricular thrombosis [None]
  - Deep vein thrombosis [None]
